FAERS Safety Report 7032675-5 (Version None)
Quarter: 2010Q4

REPORT INFORMATION
  Report Type: 
  Country: None (occurrence: None)
  Receive Date: 20101007
  Receipt Date: 20100930
  Transmission Date: 20110411
  Serious: Yes (Death)
  Sender: FDA-Public Use
  Company Number: PHHY2010US55405

PATIENT
  Sex: Female
  Weight: 60.771 kg

DRUGS (1)
  1. EXJADE [Suspect]
     Indication: IRON METABOLISM DISORDER
     Dosage: 500 MG
     Route: 048
     Dates: start: 20091015

REACTIONS (3)
  - CARDIOMYOPATHY [None]
  - HYPOTENSION [None]
  - SEPTIC SHOCK [None]
